FAERS Safety Report 7622138-8 (Version None)
Quarter: 2011Q3

REPORT INFORMATION
  Report Type: 
  Country: None (occurrence: None)
  Receive Date: 20110720
  Receipt Date: 20101115
  Transmission Date: 20111222
  Serious: No
  Sender: FDA-Public Use
  Company Number: US-BAYER-2010-008198

PATIENT
  Sex: Male
  Weight: 127 kg

DRUGS (6)
  1. JANUVIA [Concomitant]
  2. ASPIRIN [Suspect]
  3. LIPITOR [Concomitant]
  4. ALEVE (CAPLET) [Suspect]
     Indication: BACK PAIN
     Dosage: UNK
     Route: 048
     Dates: start: 20101116
  5. ATENOLOL [Concomitant]
  6. DICYCLOMINE [Concomitant]

REACTIONS (1)
  - STOMATITIS [None]
